FAERS Safety Report 5570228-6 (Version None)
Quarter: 2007Q4

REPORT INFORMATION
  Report Type: 
  Country: None (occurrence: None)
  Receive Date: 20071220
  Receipt Date: 20071211
  Transmission Date: 20080405
  Serious: Yes (Hospitalization)
  Sender: FDA-Public Use
  Company Number: GB-PFIZER INC-2007104492

PATIENT
  Age: 1 Year
  Sex: Female

DRUGS (5)
  1. PHENYTOIN [Suspect]
     Indication: CONVULSION
  2. QUININE [Interacting]
     Indication: PLASMODIUM FALCIPARUM INFECTION
     Dosage: TEXT:10 MG/KG
  3. PYRIMETHAMINE [Concomitant]
  4. TOPIRAMATE [Concomitant]
  5. VALPROATE SODIUM [Concomitant]

REACTIONS (9)
  - DEPRESSED LEVEL OF CONSCIOUSNESS [None]
  - DISEASE RECURRENCE [None]
  - DRUG INTERACTION [None]
  - GRAND MAL CONVULSION [None]
  - IRRITABILITY [None]
  - PLASMODIUM FALCIPARUM INFECTION [None]
  - PYREXIA [None]
  - TACHYCARDIA [None]
  - TACHYPNOEA [None]
